FAERS Safety Report 16467830 (Version 1)
Quarter: 2019Q2

REPORT INFORMATION
  Report Type: Report from Study
  Country: CO (occurrence: CO)
  Receive Date: 20190624
  Receipt Date: 20190624
  Transmission Date: 20190711
  Serious: Yes (Life-Threatening, Other)
  Sender: FDA-Public Use
  Company Number: CO-BRISTOL-MYERS SQUIBB COMPANY-BMS-2019-061279

PATIENT
  Age: 68 Year
  Sex: Female

DRUGS (1)
  1. ABATACEPT [Suspect]
     Active Substance: ABATACEPT
     Indication: RHEUMATOID ARTHRITIS
     Dosage: 750 MILLIGRAM, EVERY 28 DAYS
     Route: 042
     Dates: start: 20150528, end: 20190608

REACTIONS (2)
  - Postoperative wound infection [Recovering/Resolving]
  - Finger deformity [Unknown]

NARRATIVE: CASE EVENT DATE: 20190510
